FAERS Safety Report 8134959-6 (Version None)
Quarter: 2012Q1

REPORT INFORMATION
  Report Type: 
  Country: None (occurrence: None)
  Receive Date: 20120214
  Receipt Date: 20120206
  Transmission Date: 20120608
  Serious: Yes (Other)
  Sender: FDA-Public Use
  Company Number: IT-JNJFOC-20111211034

PATIENT
  Age: 49 Year
  Sex: Female

DRUGS (1)
  1. REMICADE [Suspect]
     Indication: CROHN'S DISEASE
     Route: 042
     Dates: start: 20111220, end: 20111220

REACTIONS (5)
  - INFUSION RELATED REACTION [None]
  - FLUSHING [None]
  - CHOKING SENSATION [None]
  - OXYGEN SATURATION DECREASED [None]
  - TACHYCARDIA [None]
